FAERS Safety Report 23596954 (Version 2)
Quarter: 2024Q1

REPORT INFORMATION
  Report Type: Spontaneous
  Country: US (occurrence: US)
  Receive Date: 20240305
  Receipt Date: 20240328
  Transmission Date: 20240410
  Serious: No
  Sender: FDA-Public Use
  Company Number: US-Calliditas-2024CAL00124

PATIENT
  Age: 81 Year
  Sex: Female

DRUGS (24)
  1. TARPEYO [Suspect]
     Active Substance: BUDESONIDE
     Indication: IgA nephropathy
     Dosage: 16 MG (4 MG CAPSULES) ONCE DAILY
     Route: 048
     Dates: start: 202401
  2. LIPITOR [Concomitant]
     Active Substance: ATORVASTATIN CALCIUM
  3. COREG [Concomitant]
     Active Substance: CARVEDILOL
     Route: 048
  4. LOTRISONE [Concomitant]
     Active Substance: BETAMETHASONE DIPROPIONATE\CLOTRIMAZOLE
  5. FARXIGA [Concomitant]
     Active Substance: DAPAGLIFLOZIN PROPANEDIOL
     Route: 048
  6. ARICEPT [Concomitant]
     Active Substance: DONEPEZIL HYDROCHLORIDE
     Route: 048
  7. CARDURA [Concomitant]
     Active Substance: DOXAZOSIN MESYLATE
     Route: 048
  8. ERGOCALCIFEROL [Concomitant]
     Active Substance: ERGOCALCIFEROL
     Route: 048
  9. PLENDIL [Concomitant]
     Active Substance: FELODIPINE
     Route: 048
  10. KERENDIA [Concomitant]
     Active Substance: FINERENONE
     Route: 048
  11. NEURONTIN [Concomitant]
     Active Substance: GABAPENTIN
  12. GLUCOTROL XL [Concomitant]
     Active Substance: GLIPIZIDE
  13. BENICAR [Concomitant]
     Active Substance: OLMESARTAN MEDOXOMIL
     Route: 048
  14. ZOLOFT [Concomitant]
     Active Substance: SERTRALINE HYDROCHLORIDE
     Route: 048
  15. TRADJENTA [Concomitant]
     Active Substance: LINAGLIPTIN
     Route: 048
  16. VASCEPA [Concomitant]
     Active Substance: ICOSAPENT ETHYL
     Route: 048
  17. LIDOCAINE [Concomitant]
     Active Substance: LIDOCAINE
  18. ASPIRIN [Concomitant]
     Active Substance: ASPIRIN
     Route: 048
  19. JUBLIA [Concomitant]
     Active Substance: EFINACONAZOLE
  20. ERYTHROMYCIN [Concomitant]
     Active Substance: ERYTHROMYCIN
  21. KETOCONAZOLE [Concomitant]
     Active Substance: KETOCONAZOLE
  22. PANTOPRAZOLE [Concomitant]
     Active Substance: PANTOPRAZOLE
  23. VARENICLINE [Concomitant]
     Active Substance: VARENICLINE
  24. EZETIMIBE [Concomitant]
     Active Substance: EZETIMIBE

REACTIONS (3)
  - Blood glucose increased [Not Recovered/Not Resolved]
  - Blood potassium increased [Unknown]
  - Glycosylated haemoglobin increased [Unknown]
